FAERS Safety Report 4436572-0 (Version None)
Quarter: 2004Q3

REPORT INFORMATION
  Report Type: 
  Country: None (occurrence: None)
  Receive Date: 20040830
  Receipt Date: 20040629
  Transmission Date: 20050211
  Serious: No
  Sender: FDA-Public Use
  Company Number: US-BRISTOL-MYERS SQUIBB COMPANY-12629051

PATIENT
  Age: 41 Year
  Sex: Male
  Weight: 84 kg

DRUGS (2)
  1. ABILIFY [Suspect]
     Indication: SCHIZOPHRENIA
     Dosage: STOPPED ALL MEDICATIONS FOR 4 DAYS DURING JUN-2004.
     Route: 048
     Dates: start: 20040401
  2. CLONAZEPAM [Concomitant]

REACTIONS (2)
  - DEPRESSION [None]
  - LETHARGY [None]
